FAERS Safety Report 11225145 (Version 1)
Quarter: 2015Q2

REPORT INFORMATION
  Report Type: Spontaneous
  Country: US (occurrence: US)
  Receive Date: 20150629
  Receipt Date: 20150629
  Transmission Date: 20150821
  Serious: Yes (Other)
  Sender: FDA-Public Use
  Company Number: US-PFIZER INC-2015211698

PATIENT
  Sex: Female

DRUGS (1)
  1. LYRICA [Suspect]
     Active Substance: PREGABALIN
     Dosage: UNK

REACTIONS (7)
  - Gallbladder disorder [Unknown]
  - Impaired work ability [Unknown]
  - Liver disorder [Unknown]
  - Breast cyst [Unknown]
  - Renal disorder [Unknown]
  - Systemic lupus erythematosus [Unknown]
  - Ovarian cyst [Unknown]
